FAERS Safety Report 6079735-3 (Version None)
Quarter: 2009Q1

REPORT INFORMATION
  Report Type: 
  Country: None (occurrence: None)
  Receive Date: 20090212
  Receipt Date: 20090128
  Transmission Date: 20090719
  Serious: Yes (Death, Hospitalization)
  Sender: FDA-Public Use
  Company Number: 2008002291

PATIENT
  Age: 64 Year
  Sex: Male
  Weight: 61 kg

DRUGS (12)
  1. ERLOTINIB (ERLOTINIB) (TABLET) (ERLOTINIB) [Suspect]
     Indication: NON-SMALL CELL LUNG CANCER
     Dosage: 150 MG, QD, ORAL
     Route: 048
     Dates: start: 20080718, end: 20080826
  2. SUNITINIB/PLACEBO [Suspect]
     Indication: NON-SMALL CELL LUNG CANCER
     Dosage: 37.5 MG, QD, ORAL
     Route: 048
     Dates: start: 20080718, end: 20080826
  3. VOLTAREN [Concomitant]
  4. ENALAPRIL MALEATE [Concomitant]
  5. OMEPRAZOLE [Concomitant]
  6. MEGESTROL ACETATE [Concomitant]
  7. LORAZEPAM [Concomitant]
  8. FENTANYL-100 [Concomitant]
  9. METFORMIN HCL [Concomitant]
  10. ALPRAZOLAM [Concomitant]
  11. SERTRALINE [Concomitant]
  12. MIRTAZAPINE [Concomitant]

REACTIONS (4)
  - ATAXIA [None]
  - DEPRESSION [None]
  - DISEASE PROGRESSION [None]
  - SPEECH DISORDER [None]
